FAERS Safety Report 9066282 (Version 1)
Quarter: 2013Q1

REPORT INFORMATION
  Report Type: Report from Study
  Country: US (occurrence: US)
  Receive Date: 20130131
  Receipt Date: 20130131
  Transmission Date: 20140127
  Serious: No
  Sender: FDA-Public Use
  Company Number: US-ABBOTT-12P-163-1015737-00

PATIENT
  Age: 42 Year
  Sex: Female

DRUGS (5)
  1. HUMIRA [Suspect]
     Indication: CROHN^S DISEASE
     Dates: start: 20121029, end: 20121029
  2. HUMIRA [Suspect]
     Dates: start: 20121114, end: 20121114
  3. HUMIRA [Suspect]
     Dates: start: 20121126
  4. PREDNISONE [Concomitant]
     Indication: PRODUCT USED FOR UNKNOWN INDICATION
     Dosage: 25-30 MG DAILY
  5. FLEXERIL [Concomitant]
     Indication: RHEUMATOID ARTHRITIS
     Dosage: 25 MG DAILY

REACTIONS (1)
  - Pollakiuria [Not Recovered/Not Resolved]
